FAERS Safety Report 25351094 (Version 3)
Quarter: 2025Q2

REPORT INFORMATION
  Report Type: Spontaneous
  Country: NL (occurrence: NL)
  Receive Date: 20250523
  Receipt Date: 20250624
  Transmission Date: 20250717
  Serious: Yes (Hospitalization)
  Sender: NOVARTIS
  Company Number: NL-002147023-NVSC2025NL082452

PATIENT
  Age: 58 Year
  Sex: Male
  Weight: 84 kg

DRUGS (2)
  1. LEQVIO [Suspect]
     Active Substance: INCLISIRAN SODIUM
     Indication: Hypercholesterolaemia
     Route: 065
     Dates: start: 20250403, end: 20250504
  2. ASPIRIN [Concomitant]
     Active Substance: ASPIRIN
     Indication: Product used for unknown indication
     Dosage: 80 MG, QD
     Route: 065
     Dates: start: 2023

REACTIONS (8)
  - Pyrexia [Recovered/Resolved]
  - Secretion discharge [Recovering/Resolving]
  - Cheyne-Stokes respiration [Unknown]
  - Productive cough [Recovering/Resolving]
  - Respiratory rate increased [Recovering/Resolving]
  - Inflammatory marker increased [Unknown]
  - Malaise [Not Recovered/Not Resolved]
  - Fatigue [Not Recovered/Not Resolved]

NARRATIVE: CASE EVENT DATE: 20250501
